FAERS Safety Report 19784690 (Version 6)
Quarter: 2022Q1

REPORT INFORMATION
  Report Type: Report from Study
  Country: US (occurrence: US)
  Receive Date: 20210903
  Receipt Date: 20220305
  Transmission Date: 20220423
  Serious: Yes (Other)
  Sender: FDA-Public Use
  Company Number: US-NOVARTISPH-NVSC2021US198538

PATIENT
  Sex: Male

DRUGS (1)
  1. ENTRESTO [Suspect]
     Active Substance: SACUBITRIL\VALSARTAN
     Indication: Product used for unknown indication
     Dosage: 0.5 DF, BID (24/26MG)
     Route: 065

REACTIONS (5)
  - Dementia Alzheimer^s type [Unknown]
  - Fall [Unknown]
  - Hypotension [Recovered/Resolved]
  - Gait disturbance [Unknown]
  - Wrong technique in product usage process [Not Recovered/Not Resolved]
